FAERS Safety Report 8571956-0 (Version None)
Quarter: 2012Q3

REPORT INFORMATION
  Report Type: 
  Country: None (occurrence: None)
  Receive Date: 20120724
  Receipt Date: 20120711
  Transmission Date: 20120928
  Serious: Yes (Death, Other)
  Sender: FDA-Public Use
  Company Number: 2012P1050080

PATIENT
  Age: 34 Year
  Sex: Male

DRUGS (10)
  1. NONTRIPTYLINE [Concomitant]
  2. PREGABALIN [Concomitant]
  3. LAMOTRIGINE [Concomitant]
  4. LEVETIRACETAM [Concomitant]
  5. MORPHINE [Suspect]
     Indication: ACCIDENTAL POISONING
  6. . [Concomitant]
  7. M-CPP [Concomitant]
  8. TRAZODONE HYDROCHLORIDE [Concomitant]
  9. AMITRIPTYLINE HCL [Concomitant]
  10. DIPHENHYDRAMINE HYDROCHLORIDE [Concomitant]

REACTIONS (1)
  - ACCIDENTAL POISONING [None]
